FAERS Safety Report 11253501 (Version 1)
Quarter: 2015Q3

REPORT INFORMATION
  Report Type: Spontaneous
  Country: US (occurrence: US)
  Receive Date: 20150709
  Receipt Date: 20150709
  Transmission Date: 20151125
  Serious: No
  Sender: FDA-Public Use
  Company Number: US-ASTRAZENECA-2006BM02465

PATIENT
  Age: 19943 Day
  Sex: Female
  Weight: 102.1 kg

DRUGS (9)
  1. AVANDIA [Concomitant]
     Active Substance: ROSIGLITAZONE MALEATE
     Indication: TYPE 2 DIABETES MELLITUS
     Route: 048
     Dates: start: 2004, end: 20060206
  2. BYDUREON [Suspect]
     Active Substance: EXENATIDE
     Route: 058
  3. BYETTA [Suspect]
     Active Substance: EXENATIDE
     Indication: TYPE 2 DIABETES MELLITUS
     Route: 058
     Dates: start: 20060206
  4. LEVEMIR [Concomitant]
     Active Substance: INSULIN DETEMIR
  5. JANUVIA [Concomitant]
     Active Substance: SITAGLIPTIN PHOSPHATE
  6. GABAPENTIN. [Concomitant]
     Active Substance: GABAPENTIN
  7. GLUCOPHAGE BRISTOL-MYERS SQUIBB [Concomitant]
     Route: 048
     Dates: start: 1996
  8. CYCLOSET [Concomitant]
     Active Substance: BROMOCRIPTINE MESYLATE
  9. LINZESS [Concomitant]
     Active Substance: LINACLOTIDE

REACTIONS (13)
  - Back disorder [Unknown]
  - Therapeutic response unexpected [Not Recovered/Not Resolved]
  - Blood glucose decreased [Unknown]
  - Abdominal distension [Not Recovered/Not Resolved]
  - Blood glucose increased [Unknown]
  - Abdominal pain upper [Unknown]
  - Drug dose omission [Unknown]
  - Pallor [Recovered/Resolved]
  - Nausea [Recovered/Resolved]
  - Arthritis [Unknown]
  - Micturition disorder [Unknown]
  - Eructation [Recovered/Resolved]
  - Decreased appetite [Not Recovered/Not Resolved]

NARRATIVE: CASE EVENT DATE: 20060206
